FAERS Safety Report 25776704 (Version 1)
Quarter: 2025Q3

REPORT INFORMATION
  Report Type: Spontaneous
  Country: US (occurrence: US)
  Receive Date: 20250909
  Receipt Date: 20250909
  Transmission Date: 20251020
  Serious: No
  Sender: DOMPE FARMACEUTICI
  Company Number: US-FARMAPROD-202503-0873

PATIENT
  Age: 72 Year
  Sex: Female

DRUGS (4)
  1. OXERVATE [Suspect]
     Active Substance: CENEGERMIN-BKBJ
     Indication: Neurotrophic keratopathy
     Route: 047
     Dates: start: 20250226, end: 20250406
  2. LEVOTHYROXINE SODIUM [Concomitant]
     Active Substance: LEVOTHYROXINE SODIUM
  3. WARFARIN SODIUM [Concomitant]
     Active Substance: WARFARIN SODIUM
  4. XIIDRA [Concomitant]
     Active Substance: LIFITEGRAST
     Dates: start: 20250404

REACTIONS (7)
  - Inappropriate schedule of product administration [Unknown]
  - Vision blurred [Unknown]
  - Foreign body sensation in eyes [Unknown]
  - Eye irritation [Unknown]
  - Eye pain [Unknown]
  - Photophobia [Unknown]
  - Nasopharyngitis [Unknown]

NARRATIVE: CASE EVENT DATE: 20250313
